FAERS Safety Report 10173181 (Version 1)
Quarter: 2014Q2

REPORT INFORMATION
  Report Type: Spontaneous
  Country: JP (occurrence: JP)
  Receive Date: 20140515
  Receipt Date: 20140515
  Transmission Date: 20141212
  Serious: Yes (Other)
  Sender: FDA-Public Use
  Company Number: JP-JNJFOC-20140507051

PATIENT
  Age: 55 Year
  Sex: Male

DRUGS (3)
  1. SIMEPREVIR [Suspect]
     Indication: CHRONIC HEPATITIS C
     Route: 048
     Dates: start: 20140109, end: 20140402
  2. PEGINTRON [Concomitant]
     Indication: CHRONIC HEPATITIS C
     Route: 058
     Dates: start: 20140109
  3. REBETOL [Concomitant]
     Indication: CHRONIC HEPATITIS C
     Route: 048
     Dates: start: 20140109

REACTIONS (1)
  - Alanine aminotransferase increased [Recovering/Resolving]
